FAERS Safety Report 10169210 (Version 2)
Quarter: 2014Q2

REPORT INFORMATION
  Report Type: Spontaneous
  Country: US (occurrence: US)
  Receive Date: 20140513
  Receipt Date: 20140513
  Transmission Date: 20141212
  Serious: No
  Sender: FDA-Public Use
  Company Number: US-DRREDDYS-USA/USA/14/0037081

PATIENT
  Age: 63 Year
  Sex: Male

DRUGS (4)
  1. FEXOFENADINE HYDROCHLORIDE AND PSEUDOEPHEDRINE HYDROCHLORIDE EXTENDED [Suspect]
     Indication: HYPERSENSITIVITY
     Route: 048
     Dates: start: 20140107
  2. FEXOFENADINE HYDROCHLORIDE AND PSEUDOEPHEDRINE HYDROCHLORIDE EXTENDED [Suspect]
     Indication: EAR DISCOMFORT
  3. COQ10 [Concomitant]
     Indication: HYPERTENSION
     Route: 065
  4. PROPECIA [Concomitant]
     Indication: ALOPECIA
     Route: 065

REACTIONS (3)
  - Wrong technique in drug usage process [Unknown]
  - Product physical issue [Unknown]
  - No adverse event [Unknown]
